FAERS Safety Report 19736325 (Version 1)
Quarter: 2021Q3

REPORT INFORMATION
  Report Type: Spontaneous
  Country: DE (occurrence: DE)
  Receive Date: 20210824
  Receipt Date: 20210824
  Transmission Date: 20211014
  Serious: Yes (Hospitalization, Other)
  Sender: FDA-Public Use
  Company Number: DE-TEVA-2021-DE-1943654

PATIENT
  Age: 32 Year
  Sex: Male
  Weight: 52 kg

DRUGS (1)
  1. PHENOXYMETHYLPENICILLIN [Suspect]
     Active Substance: PENICILLIN V
     Dosage: SCHEME

REACTIONS (12)
  - Oropharyngeal pain [Unknown]
  - Confusional state [Unknown]
  - Restlessness [Unknown]
  - Pyrexia [Unknown]
  - Anxiety [Unknown]
  - Memory impairment [Unknown]
  - Tachycardia [Unknown]
  - Agitation [Unknown]
  - Rash [Unknown]
  - Urticaria [Unknown]
  - General physical health deterioration [Unknown]
  - Depressed level of consciousness [Unknown]
